FAERS Safety Report 10450643 (Version 2)
Quarter: 2014Q3

REPORT INFORMATION
  Report Type: Report from Study
  Country: US (occurrence: US)
  Receive Date: 20140912
  Receipt Date: 20140912
  Transmission Date: 20150326
  Serious: Yes (Hospitalization)
  Sender: FDA-Public Use
  Company Number: US-BRISTOL-MYERS SQUIBB COMPANY-19991058

PATIENT
  Age: 71 Year
  Sex: Female
  Weight: 75 kg

DRUGS (6)
  1. LASIX [Suspect]
     Active Substance: FUROSEMIDE
     Indication: DIURETIC THERAPY
     Route: 048
  2. AMLODIPINE [Concomitant]
     Active Substance: AMLODIPINE BESYLATE
     Route: 048
  3. IPILIMUMAB [Suspect]
     Active Substance: IPILIMUMAB
     Indication: MALIGNANT MELANOMA
     Dosage: TOTAL DOSE ADMNSTRD-224MG,LAST DOSE ADMNSTRD-12DEC2013?START DT: 12DEC13
     Route: 042
     Dates: start: 20131210
  4. HYDROCODONE, ACETAMINOPHEN [Suspect]
     Active Substance: ACETAMINOPHEN\HYDROCODONE BITARTRATE
     Dosage: 1DF:1 TAB-10/325MG,AS NECESSARY.
     Route: 048
  5. HYDROCHLOROTHIAZIDE. [Suspect]
     Active Substance: HYDROCHLOROTHIAZIDE
     Route: 048
  6. POTASSIUM CHLORIDE. [Concomitant]
     Active Substance: POTASSIUM CHLORIDE
     Indication: DIURETIC THERAPY
     Route: 048

REACTIONS (4)
  - Renal failure acute [Recovering/Resolving]
  - Hyperuricaemia [Recovering/Resolving]
  - Muscular weakness [Recovering/Resolving]
  - Hypermagnesaemia [Recovering/Resolving]

NARRATIVE: CASE EVENT DATE: 20131231
